FAERS Safety Report 15946769 (Version 1)
Quarter: 2019Q1

REPORT INFORMATION
  Report Type: Spontaneous
  Country: CA (occurrence: CA)
  Receive Date: 20190211
  Receipt Date: 20190211
  Transmission Date: 20190417
  Serious: Yes (Other)
  Sender: FDA-Public Use
  Company Number: CA-009507513-1902CAN003750

PATIENT
  Age: 67 Year
  Sex: Female
  Weight: 95 kg

DRUGS (7)
  1. ADVIL [Suspect]
     Active Substance: IBUPROFEN
     Indication: PRODUCT USED FOR UNKNOWN INDICATION
     Dosage: UNK
     Route: 065
  2. SPIRONOLACTONE. [Concomitant]
     Active Substance: SPIRONOLACTONE
     Dosage: UNK
  3. EZETROL [Suspect]
     Active Substance: EZETIMIBE
     Indication: BLOOD CHOLESTEROL INCREASED
     Dosage: 10 MILLIGRAM, 1 EVERY1 DAY (S)
     Route: 048
  4. AMLODIPINE BESYLATE. [Concomitant]
     Active Substance: AMLODIPINE BESYLATE
     Dosage: UNK
  5. ACETAMINOPHEN. [Concomitant]
     Active Substance: ACETAMINOPHEN
     Dosage: UNK
  6. ASPIRIN. [Concomitant]
     Active Substance: ASPIRIN
     Dosage: UNK
     Route: 048
  7. LOSEC (OMEPRAZOLE) [Concomitant]
     Dosage: UNK

REACTIONS (17)
  - Eye swelling [Recovered/Resolved]
  - Malaise [Recovered/Resolved]
  - Rhinorrhoea [Recovered/Resolved]
  - Arthralgia [Recovered/Resolved]
  - Lethargy [Recovered/Resolved]
  - Tinnitus [Recovered/Resolved]
  - Dysphonia [Recovered/Resolved]
  - Influenza like illness [Recovered/Resolved]
  - Eye pruritus [Recovered/Resolved]
  - Nasal congestion [Recovered/Resolved]
  - Wheezing [Recovered/Resolved]
  - Dyspnoea [Recovered/Resolved]
  - Ocular hyperaemia [Recovered/Resolved]
  - Reaction to excipient [Recovered/Resolved]
  - Nasopharyngitis [Recovered/Resolved]
  - Decreased appetite [Recovered/Resolved]
  - Sneezing [Recovered/Resolved]
